FAERS Safety Report 19000477 (Version 1)
Quarter: 2021Q1

REPORT INFORMATION
  Report Type: Spontaneous
  Country: US (occurrence: US)
  Receive Date: 20210311
  Receipt Date: 20210311
  Transmission Date: 20210420
  Serious: No
  Sender: FDA-Public Use
  Company Number: US-ADAMAS_PHARMACEUTICALS-USA-POI1235202100016

PATIENT
  Age: 46 Year
  Sex: Female

DRUGS (4)
  1. OSMOLEX ER [Suspect]
     Active Substance: AMANTADINE
     Indication: PARKINSON^S DISEASE
     Dates: start: 20190816
  2. CARBIDOPA. [Concomitant]
     Active Substance: CARBIDOPA
     Indication: PRODUCT USED FOR UNKNOWN INDICATION
  3. PAXIL [Concomitant]
     Active Substance: PAROXETINE HYDROCHLORIDE
     Indication: PRODUCT USED FOR UNKNOWN INDICATION
  4. OSMOLEX ER [Suspect]
     Active Substance: AMANTADINE
     Dates: start: 20190816

REACTIONS (1)
  - Parkinson^s disease [Recovered/Resolved]

NARRATIVE: CASE EVENT DATE: 2020
